FAERS Safety Report 12906886 (Version 3)
Quarter: 2017Q1

REPORT INFORMATION
  Report Type: Spontaneous
  Country: PE (occurrence: PE)
  Receive Date: 20161103
  Receipt Date: 20170123
  Transmission Date: 20170428
  Serious: Yes (Hospitalization, Other)
  Sender: FDA-Public Use
  Company Number: PE-PFIZER INC-2016507931

PATIENT
  Age: 21 Year
  Sex: Male

DRUGS (4)
  1. INSULINE [Concomitant]
     Active Substance: INSULIN NOS
     Dosage: 20 UNITS IN THE MORNING AND 15 UNITS IN THE AFTERNOON
  2. TRAMADOL. [Concomitant]
     Active Substance: TRAMADOL
     Indication: PAIN
     Dosage: 50 MG, 3 TIMES DAILY AS NEEDED
     Dates: start: 201604
  3. LYRICA [Suspect]
     Active Substance: PREGABALIN
     Dosage: 300 MG, 3X/DAY
     Dates: start: 2008, end: 201610
  4. LYRICA [Suspect]
     Active Substance: PREGABALIN
     Indication: DIABETIC NEUROPATHY
     Dosage: 900 MG, DAILY

REACTIONS (9)
  - Pain [Unknown]
  - Condition aggravated [Unknown]
  - Neuropathy peripheral [Unknown]
  - Overdose [Recovered/Resolved]
  - Diabetes mellitus [Unknown]
  - Stress [Unknown]
  - Disease progression [Unknown]
  - Blood glucose increased [Recovered/Resolved]
  - Diabetic coma [Recovered/Resolved]

NARRATIVE: CASE EVENT DATE: 2008
